FAERS Safety Report 7504173-3 (Version None)
Quarter: 2011Q2

REPORT INFORMATION
  Report Type: 
  Country: None (occurrence: None)
  Receive Date: 20110525
  Receipt Date: 20110513
  Transmission Date: 20111010
  Serious: Yes (Hospitalization, Other)
  Sender: FDA-Public Use
  Company Number: US-ELI_LILLY_AND_COMPANY-US201009007120

PATIENT
  Sex: Female
  Weight: 37 kg

DRUGS (18)
  1. FISH OIL [Concomitant]
     Dosage: 1000 MG, UNK
  2. LEVETIRACETAM [Concomitant]
     Indication: CONVULSION
     Dosage: 500 MG, UNK
     Dates: start: 20100909, end: 20100910
  3. CALCIUM CITRATE WITH VITAMIN D [Concomitant]
  4. LIPITOR [Concomitant]
     Dosage: 10 MG, UNK
  5. OMEPRAZOLE [Concomitant]
     Indication: ULCER
     Dosage: 40 MG, UNK
  6. ANTIBIOTICS [Concomitant]
  7. FORTEO [Suspect]
     Indication: OSTEOPOROSIS
     Dosage: 20 UG, DAILY (1/D)
     Dates: start: 20100827, end: 20101101
  8. CITRACAL [Concomitant]
  9. PROTONIX [Concomitant]
  10. FORTEO [Suspect]
     Dosage: 20 UG, QD
     Dates: start: 20101201
  11. LEVOTHYROXINE SODIUM [Concomitant]
     Indication: HYPOTHYROIDISM
     Dosage: 25 UG, UNK
  12. CLONAZEPAM [Concomitant]
     Indication: INSOMNIA
     Dosage: 10 MG, UNK
  13. NASONEX [Concomitant]
     Indication: MULTIPLE ALLERGIES
  14. GLUCOSAMINE [Concomitant]
  15. PEPPERMINT OIL [Concomitant]
     Indication: IRRITABLE BOWEL SYNDROME
  16. CENTRUM /00554501/ [Concomitant]
  17. DARVOCET [Concomitant]
     Indication: HEADACHE
  18. CYCLOBENZAPRINE [Concomitant]

REACTIONS (12)
  - SUBDURAL HAEMATOMA [None]
  - JOINT INJURY [None]
  - DYSARTHRIA [None]
  - HAND FRACTURE [None]
  - ARTERIAL DISORDER [None]
  - FATIGUE [None]
  - ASTHENIA [None]
  - GAIT DISTURBANCE [None]
  - TOOTH FRACTURE [None]
  - BLOOD CALCIUM INCREASED [None]
  - FALL [None]
  - HEADACHE [None]
